FAERS Safety Report 5555839-6 (Version None)
Quarter: 2007Q4

REPORT INFORMATION
  Report Type: 
  Country: None (occurrence: None)
  Receive Date: 20071130
  Receipt Date: 20070814
  Transmission Date: 20080405
  Serious: No
  Sender: FDA-Public Use
  Company Number: US200705002410

PATIENT
  Sex: Female

DRUGS (2)
  1. BYETTA [Suspect]
     Dosage: 10 UG, SUBCUTANEOUS ; SUBCUTANEOUS ; SUBCUTANEOUS
     Route: 058
  2. EXENATIDE UNK STRENGTH PEN, DISPOSABLE DEVICE (EXENATIDE PEN (UNKNOWN [Concomitant]

REACTIONS (3)
  - BLOOD GLUCOSE INCREASED [None]
  - DECREASED APPETITE [None]
  - WEIGHT DECREASED [None]
